FAERS Safety Report 6935669-0 (Version None)
Quarter: 2010Q3

REPORT INFORMATION
  Report Type: 
  Country: None (occurrence: None)
  Receive Date: 20100823
  Receipt Date: 20100812
  Transmission Date: 20110219
  Serious: Yes (Hospitalization, Other)
  Sender: FDA-Public Use
  Company Number: US-JNJFOC-20100805301

PATIENT
  Sex: Male
  Weight: 87.09 kg

DRUGS (10)
  1. DURAGESIC-100 [Suspect]
     Indication: BACK PAIN
     Route: 062
  2. DURAGESIC-100 [Suspect]
     Route: 062
  3. DURAGESIC-100 [Suspect]
     Route: 062
  4. UNSPECIFIED FENTANYL TRANSDERMAL PATCH [Suspect]
     Indication: BACK PAIN
     Route: 062
  5. DURAGESIC-100 [Suspect]
     Route: 062
  6. DILTIAZEM [Concomitant]
     Indication: CARDIAC DISORDER
     Route: 048
  7. TOPROL-XL [Concomitant]
     Indication: CARDIAC DISORDER
     Route: 048
  8. PRILOSEC [Concomitant]
     Indication: GASTROOESOPHAGEAL REFLUX DISEASE
     Route: 048
  9. PERCOCET [Concomitant]
     Indication: BREAKTHROUGH PAIN
     Route: 048
  10. CELEXA [Concomitant]
     Indication: PAIN
     Route: 048

REACTIONS (6)
  - FATIGUE [None]
  - PAIN [None]
  - PALPITATIONS [None]
  - POLLAKIURIA [None]
  - PROSTATOMEGALY [None]
  - WITHDRAWAL SYNDROME [None]
